FAERS Safety Report 6838888-7 (Version None)
Quarter: 2010Q3

REPORT INFORMATION
  Report Type: 
  Country: None (occurrence: None)
  Receive Date: 20100713
  Receipt Date: 20070706
  Transmission Date: 20110219
  Serious: No
  Sender: FDA-Public Use
  Company Number: US-PFIZER INC-2007040833

PATIENT
  Sex: Female

DRUGS (4)
  1. CHANTIX [Suspect]
     Indication: SMOKING CESSATION THERAPY
     Dates: start: 20070511
  2. LIPITOR [Concomitant]
  3. LEXAPRO [Concomitant]
  4. SEROQUEL [Concomitant]

REACTIONS (2)
  - HEAD DISCOMFORT [None]
  - INCORRECT DOSE ADMINISTERED [None]
